FAERS Safety Report 6847541-5 (Version None)
Quarter: 2010Q3

REPORT INFORMATION
  Report Type: 
  Country: None (occurrence: None)
  Receive Date: 20100714
  Receipt Date: 20100708
  Transmission Date: 20110219
  Serious: Yes (Hospitalization)
  Sender: FDA-Public Use
  Company Number: 1000014997

PATIENT
  Age: 85 Year
  Sex: Male

DRUGS (6)
  1. NAMENDA [Suspect]
     Indication: DEMENTIA
     Dosage: 5 MG (5 MG, 1 IN 1 D), ORAL
     Route: 048
     Dates: start: 20100624, end: 20100630
  2. NAMENDA [Suspect]
     Indication: DEMENTIA
     Dosage: 10 MG (5 MG, 2 IN 1 D), ORAL
     Route: 048
     Dates: start: 20100701, end: 20100707
  3. GABAPENTIN (300 MILLIGRAM, CAPSULES) [Concomitant]
  4. GALANTAMINE [Concomitant]
  5. OMEPRAZOLE [Concomitant]
  6. MORPHINE [Concomitant]

REACTIONS (4)
  - DROOLING [None]
  - DYSARTHRIA [None]
  - HYPOACUSIS [None]
  - TREMOR [None]
